FAERS Safety Report 8888229 (Version 1)
Quarter: 2012Q4

REPORT INFORMATION
  Report Type: 
  Country: US (occurrence: US)
  Receive Date: 20121106
  Receipt Date: 20121106
  Transmission Date: 20130627
  Serious: Yes (Hospitalization)
  Sender: FDA-Public Use
  Company Number: US-BAYER-2012-113663

PATIENT
  Age: 38 Year
  Sex: Female
  Weight: 61.68 kg

DRUGS (18)
  1. OCELLA [Suspect]
     Indication: POLYCYSTIC OVARY
     Dosage: UNK
     Dates: start: 200807, end: 201002
  2. OCELLA [Suspect]
     Indication: MENSES IRREGULAR
  3. YASMIN [Suspect]
     Indication: POLYCYSTIC OVARY
     Dosage: UNK
     Dates: start: 2002, end: 200807
  4. YASMIN [Suspect]
     Indication: MENSES IRREGULAR
  5. GABITRIL [Concomitant]
     Indication: ANTICONVULSANT DRUG LEVEL THERAPEUTIC
     Dosage: 4 mg, UNK
     Route: 048
     Dates: start: 2007
  6. AMITIZA [Concomitant]
     Indication: LAXATIVE SUPPORTIVE CARE
     Dosage: 24 ?g, UNK
     Route: 048
     Dates: start: 2006, end: 2012
  7. TETRACYCLINE [Concomitant]
     Dosage: 500 mg, UNK
     Route: 048
  8. FINACEA [Concomitant]
     Dosage: 15 mg, UNK
     Route: 061
  9. SOLARAZE [Concomitant]
     Dosage: 3 %, UNK
     Route: 061
  10. KETOCONAZOLE [Concomitant]
     Dosage: 2 %, UNK
     Route: 061
  11. TRI-LUMA [Concomitant]
     Route: 061
  12. PROTONIX [Concomitant]
     Dosage: 40 mg, UNK
     Dates: start: 20091210
  13. CYANOCOBALAMIN [Concomitant]
     Dosage: 1000 mcg/mL, UNK
     Route: 030
     Dates: start: 20091210
  14. CLONAZEPAM [Concomitant]
     Dosage: 0.5 mg, UNK
     Route: 048
  15. LAMICTAL [Concomitant]
     Dosage: 100 mg, UNK
     Route: 048
  16. BOTOX [Concomitant]
     Dosage: 100 u, UNK
     Route: 030
  17. TRIGGER POINT INJECTIONS [Concomitant]
     Indication: PELVIC PAIN
     Dosage: UNK
  18. TRIAMCINOLONE [Concomitant]
     Dosage: 0.1 %, UNK
     Route: 061

REACTIONS (15)
  - Thrombophlebitis superficial [Recovered/Resolved]
  - Superior vena cava syndrome [Recovering/Resolving]
  - Jugular vein distension [Recovering/Resolving]
  - Dyspnoea [Recovering/Resolving]
  - Loss of consciousness [Recovering/Resolving]
  - Pleuritic pain [Recovering/Resolving]
  - Chest discomfort [Recovering/Resolving]
  - Ear discomfort [Recovering/Resolving]
  - Flushing [Recovering/Resolving]
  - Choking sensation [Recovering/Resolving]
  - Fall [Recovering/Resolving]
  - Dizziness [Recovering/Resolving]
  - Nausea [Recovering/Resolving]
  - Emotional disorder [None]
  - Attention deficit/hyperactivity disorder [None]
